FAERS Safety Report 25423026 (Version 2)
Quarter: 2025Q3

REPORT INFORMATION
  Report Type: Spontaneous
  Country: JP (occurrence: JP)
  Receive Date: 20250611
  Receipt Date: 20250829
  Transmission Date: 20251021
  Serious: Yes (Hospitalization, Other)
  Sender: OTSUKA
  Company Number: JP-MMM-Otsuka-N9VER84K

PATIENT
  Age: 94 Year
  Sex: Female

DRUGS (5)
  1. REXULTI [Suspect]
     Active Substance: BREXPIPRAZOLE
     Indication: Dementia Alzheimer^s type
     Dosage: 0.5 MG/DAY
     Route: 048
     Dates: end: 202505
  2. REXULTI [Suspect]
     Active Substance: BREXPIPRAZOLE
     Indication: Delirium
  3. REXULTI [Suspect]
     Active Substance: BREXPIPRAZOLE
     Indication: Dementia Alzheimer^s type
     Dosage: 1MG/DAY
     Route: 048
     Dates: end: 202506
  4. REXULTI [Suspect]
     Active Substance: BREXPIPRAZOLE
     Indication: Delirium
  5. ARICEPT [Concomitant]
     Active Substance: DONEPEZIL HYDROCHLORIDE
     Indication: Product used for unknown indication
     Route: 065
     Dates: end: 202506

REACTIONS (3)
  - Delirium [Unknown]
  - Irregular sleep wake rhythm disorder [Unknown]
  - Chondrocalcinosis [Recovering/Resolving]

NARRATIVE: CASE EVENT DATE: 20250401
